FAERS Safety Report 23541224 (Version 2)
Quarter: 2024Q2

REPORT INFORMATION
  Report Type: Spontaneous
  Country: US (occurrence: US)
  Receive Date: 20240219
  Receipt Date: 20240517
  Transmission Date: 20240716
  Serious: No
  Sender: FDA-Public Use
  Company Number: US-Stemline Therapeutics, Inc.-2023ST005049

PATIENT
  Age: 59 Year
  Sex: Female

DRUGS (1)
  1. ORSERDU [Suspect]
     Active Substance: ELACESTRANT
     Indication: Product used for unknown indication
     Dosage: 345 MG
     Route: 048
     Dates: start: 20231012

REACTIONS (8)
  - Muscle spasms [Recovering/Resolving]
  - Blood pressure increased [Recovering/Resolving]
  - Red blood cell count decreased [Recovering/Resolving]
  - Bone pain [Recovering/Resolving]
  - Dyspepsia [Recovering/Resolving]
  - Headache [Recovering/Resolving]
  - Gastrooesophageal reflux disease [Recovering/Resolving]
  - Blood cholesterol increased [Not Recovered/Not Resolved]
